FAERS Safety Report 17089432 (Version 6)
Quarter: 2020Q2

REPORT INFORMATION
  Report Type: Report from Study
  Country: US (occurrence: US)
  Receive Date: 20191128
  Receipt Date: 20200526
  Transmission Date: 20200713
  Serious: Yes (Hospitalization, Other)
  Sender: FDA-Public Use
  Company Number: US-GLAXOSMITHKLINE-2019-TSO02452-US

PATIENT
  Sex: Female
  Weight: 65 kg

DRUGS (11)
  1. CLARITIN 12 HOUR [Concomitant]
     Indication: PRODUCT USED FOR UNKNOWN INDICATION
     Dosage: UNK
  2. XARELTO [Concomitant]
     Active Substance: RIVAROXABAN
     Indication: PRODUCT USED FOR UNKNOWN INDICATION
     Dosage: UNK
  3. ASA [Concomitant]
     Active Substance: ASPIRIN
     Indication: PRODUCT USED FOR UNKNOWN INDICATION
     Dosage: UNK
  4. NIRAPARIB [Suspect]
     Active Substance: NIRAPARIB
     Indication: OVARIAN CANCER
     Dosage: 200 MG, HS WITH SNACK
     Route: 048
     Dates: start: 20190701
  5. NIRAPARIB [Suspect]
     Active Substance: NIRAPARIB
     Dosage: 200 MG Q HS WITH SNACK
     Route: 048
  6. FLONASE [Concomitant]
     Active Substance: FLUTICASONE PROPIONATE
     Indication: PRODUCT USED FOR UNKNOWN INDICATION
     Dosage: UNK
  7. PEPCID [Concomitant]
     Active Substance: FAMOTIDINE
     Indication: PRODUCT USED FOR UNKNOWN INDICATION
     Dosage: UNK
  8. NIRAPARIB [Suspect]
     Active Substance: NIRAPARIB
     Dosage: 200 MG, QD
     Route: 048
  9. COMPAZINE [Concomitant]
     Active Substance: PROCHLORPERAZINE MALEATE
     Indication: PRODUCT USED FOR UNKNOWN INDICATION
     Dosage: UNK
  10. NIRAPARIB [Suspect]
     Active Substance: NIRAPARIB
     Dosage: 200 MG, QD
  11. ZOFRAN [Concomitant]
     Active Substance: ONDANSETRON HYDROCHLORIDE
     Indication: PRODUCT USED FOR UNKNOWN INDICATION
     Dosage: UNK

REACTIONS (24)
  - Goitre [Unknown]
  - Rhinorrhoea [Unknown]
  - Stress fracture [Unknown]
  - Fatigue [Recovering/Resolving]
  - Skin lesion [Unknown]
  - Eczema [Recovered/Resolved]
  - Chills [Unknown]
  - Constipation [Recovered/Resolved]
  - Hospitalisation [Unknown]
  - Tooth disorder [Unknown]
  - Compression fracture [Unknown]
  - Condition aggravated [Recovering/Resolving]
  - Dry mouth [Recovered/Resolved]
  - Walking aid user [Recovered/Resolved]
  - Limb discomfort [Recovering/Resolving]
  - Erythema [Unknown]
  - Cellulitis [Recovered/Resolved]
  - Pruritus [Recovered/Resolved]
  - Nasopharyngitis [Unknown]
  - Blister [Unknown]
  - Feeling cold [Unknown]
  - Pyrexia [Recovered/Resolved]
  - Stasis dermatitis [Recovered/Resolved]
  - Skin discolouration [Unknown]
